FAERS Safety Report 5395973-7 (Version None)
Quarter: 2007Q3

REPORT INFORMATION
  Report Type: 
  Country: None (occurrence: None)
  Receive Date: 20070724
  Receipt Date: 20070712
  Transmission Date: 20080115
  Serious: Yes (Hospitalization, Other)
  Sender: FDA-Public Use
  Company Number: US-PFIZER INC-2007058035

PATIENT
  Sex: Female

DRUGS (2)
  1. CELEBREX [Suspect]
     Indication: MUSCULOSKELETAL PAIN
     Dosage: DAILY DOSE:200MG
  2. CELEBREX [Suspect]
     Indication: BACK PAIN

REACTIONS (7)
  - CARDIAC DISORDER [None]
  - CHEST PAIN [None]
  - COLD SWEAT [None]
  - DYSPNOEA [None]
  - FATIGUE [None]
  - ISCHAEMIA [None]
  - NAUSEA [None]
